FAERS Safety Report 16624733 (Version 4)
Quarter: 2019Q3

REPORT INFORMATION
  Report Type: Spontaneous
  Country: BR (occurrence: BR)
  Receive Date: 20190724
  Receipt Date: 20190920
  Transmission Date: 20191004
  Serious: Yes (Other)
  Sender: FDA-Public Use
  Company Number: BR-CELGENEUS-BRA-20190706590

PATIENT
  Sex: Male

DRUGS (1)
  1. VIDAZA [Suspect]
     Active Substance: AZACITIDINE
     Indication: MYELODYSPLASTIC SYNDROME
     Dosage: 120 MILLIGRAM
     Route: 058
     Dates: start: 20190310, end: 20190729

REACTIONS (6)
  - Red blood cell count abnormal [Unknown]
  - Drug ineffective [Unknown]
  - Haemoglobin abnormal [Unknown]
  - Blood count abnormal [Unknown]
  - Platelet disorder [Unknown]
  - Haemoglobin decreased [Unknown]
